FAERS Safety Report 8475152-7 (Version None)
Quarter: 2012Q2

REPORT INFORMATION
  Report Type: 
  Country: None (occurrence: None)
  Receive Date: 20120628
  Receipt Date: 20120622
  Transmission Date: 20120825
  Serious: Yes (Hospitalization)
  Sender: FDA-Public Use
  Company Number: US-PFIZER INC-2012151889

PATIENT
  Sex: Male

DRUGS (22)
  1. SUNITINIB MALATE [Suspect]
     Dosage: 37.5 MG, 1X/DAY
     Route: 048
     Dates: start: 20100605, end: 20111015
  2. CLONIDINE [Concomitant]
     Dosage: UNK
     Dates: start: 20120208
  3. SYNTHROID [Concomitant]
  4. ADVAIR DISKUS 100/50 [Concomitant]
  5. TAC [Concomitant]
  6. FLUTICASONE [Concomitant]
  7. SUNITINIB MALATE [Suspect]
     Dosage: 25 MG, 1X/DAY
     Route: 048
     Dates: start: 20111117
  8. GLIPIZIDE [Concomitant]
     Dosage: UNK
     Dates: start: 20101108
  9. ACETAMINOPHEN [Concomitant]
  10. PERCOCET [Concomitant]
  11. SINGULAIR [Concomitant]
  12. LISINOPRIL [Concomitant]
     Dosage: UNK
     Dates: start: 20120120
  13. SITAGLIPTIN PHOSPHATE [Concomitant]
     Dosage: UNK
     Dates: start: 20111111
  14. INSULIN [Concomitant]
     Dosage: UNK
     Dates: start: 20120405
  15. CALCIUM [Concomitant]
  16. BACTROBAN [Concomitant]
  17. SUNITINIB MALATE [Suspect]
     Indication: RENAL CELL CARCINOMA
     Dosage: 50 MG, 1X/DAY
     Route: 048
     Dates: start: 20100424, end: 20100521
  18. LOVASTATIN [Concomitant]
  19. EDECRIN [Concomitant]
  20. JANUVIA [Concomitant]
  21. OMEPRAZOLE [Concomitant]
  22. BENADRYL [Concomitant]

REACTIONS (1)
  - CELLULITIS [None]
